FAERS Safety Report 7170438-0 (Version None)
Quarter: 2010Q4

REPORT INFORMATION
  Report Type: 
  Country: None (occurrence: None)
  Receive Date: 20101123
  Receipt Date: 20100921
  Transmission Date: 20110411
  Serious: No
  Sender: FDA-Public Use
  Company Number: 019198

PATIENT
  Age: 53 Year
  Sex: Male
  Weight: 91 kg

DRUGS (11)
  1. CIMZIA [Suspect]
     Indication: CROHN'S DISEASE
     Dosage: (SUBCUTANEOUS)
     Route: 058
     Dates: start: 20100601
  2. SIMETHICONE [Concomitant]
  3. OMEPRAZOLE [Concomitant]
  4. CALCIUM [Concomitant]
  5. MULTI-VITAMINS [Concomitant]
  6. OXYCONTIN [Concomitant]
  7. MAG-OX [Concomitant]
  8. PERCOCET [Concomitant]
  9. CALCIUM CITRATE [Concomitant]
  10. VITAMIN B12 NOS [Concomitant]
  11. VITAMIN D [Concomitant]

REACTIONS (2)
  - ABDOMINAL PAIN [None]
  - PALPITATIONS [None]
